FAERS Safety Report 5581026-1 (Version None)
Quarter: 2008Q1

REPORT INFORMATION
  Report Type: 
  Country: None (occurrence: None)
  Receive Date: 20080103
  Receipt Date: 20071221
  Transmission Date: 20080703
  Serious: Yes (Other)
  Sender: FDA-Public Use
  Company Number: CA-MERCK-0402USA01493M

PATIENT
  Age: 22 Year
  Sex: Female

DRUGS (3)
  1. COZAAR [Suspect]
     Route: 048
     Dates: start: 20000901
  2. DIGOXIN [Concomitant]
     Route: 065
     Dates: start: 20000901
  3. FUROSEMIDE [Concomitant]
     Route: 065
     Dates: start: 20000901

REACTIONS (2)
  - BREECH DELIVERY [None]
  - DRUG EXPOSURE DURING PREGNANCY [None]
